FAERS Safety Report 6103221-5 (Version None)
Quarter: 2009Q1

REPORT INFORMATION
  Report Type: 
  Country: None (occurrence: None)
  Receive Date: 20090305
  Receipt Date: 20090226
  Transmission Date: 20090719
  Serious: Yes (Other)
  Sender: FDA-Public Use
  Company Number: DE-WYE-G03074509

PATIENT
  Sex: Female
  Weight: 59 kg

DRUGS (2)
  1. TREVILOR RETARD [Suspect]
     Indication: ANXIETY
     Route: 048
     Dates: start: 20080807, end: 20081227
  2. TREVILOR RETARD [Suspect]
     Indication: DEPRESSION
     Dosage: REDUCED DOSE
     Route: 048
     Dates: start: 20081201

REACTIONS (13)
  - ABASIA [None]
  - ABDOMINAL PAIN [None]
  - ARTHRALGIA [None]
  - CARDIAC DISORDER [None]
  - DRUG WITHDRAWAL SYNDROME [None]
  - DYSPNOEA [None]
  - HYPERHIDROSIS [None]
  - HYPOAESTHESIA [None]
  - INTENTIONAL DRUG MISUSE [None]
  - MUSCLE SPASMS [None]
  - MUSCULOSKELETAL PAIN [None]
  - PARALYSIS [None]
  - TENDON PAIN [None]
